FAERS Safety Report 22230130 (Version 1)
Quarter: 2023Q2

REPORT INFORMATION
  Report Type: Spontaneous
  Country: US (occurrence: US)
  Receive Date: 20230419
  Receipt Date: 20230419
  Transmission Date: 20230721
  Serious: No
  Sender: FDA-Public Use
  Company Number: US-EVOKE PHARMA, INC.-2023EVO000003

PATIENT
  Sex: Female

DRUGS (1)
  1. GIMOTI [Suspect]
     Active Substance: METOCLOPRAMIDE HYDROCHLORIDE
     Indication: Nausea
     Dosage: 15 MILLIGRAM, SPRAY 1 SPRAY IN ONE NOSTRIL FOUR TIMES DAILY
     Route: 045

REACTIONS (2)
  - Illness [Unknown]
  - Off label use [Unknown]
